FAERS Safety Report 5265861-5 (Version None)
Quarter: 2007Q1

REPORT INFORMATION
  Report Type: 
  Country: None (occurrence: None)
  Receive Date: 20070312
  Receipt Date: 20070312
  Transmission Date: 20070707
  Serious: Yes (Death, Life-Threatening, Hospitalization)
  Sender: FDA-Public Use
  Company Number: None

PATIENT
  Age: 74 Year
  Sex: Male

DRUGS (17)
  1. WARFARIN SODIUM [Suspect]
     Indication: DEEP VEIN THROMBOSIS
     Dosage: PO
     Route: 048
  2. CLOPIDOGREL [Suspect]
     Indication: CORONARY ARTERY DISEASE
     Dosage: PO
     Route: 048
  3. ASPIRIN [Concomitant]
  4. FOLIC ACID [Concomitant]
  5. M.V.I. [Concomitant]
  6. RANITIDINE [Concomitant]
  7. MAGNESIUM OXIDE [Concomitant]
  8. CLARITIN [Concomitant]
  9. LASIX [Concomitant]
  10. CARVEDILOL [Concomitant]
  11. ATORVASTATIN CALCIUM [Concomitant]
  12. COZAAR [Concomitant]
  13. COLACE [Concomitant]
  14. POTASSIUM CHLORIDE [Concomitant]
  15. CALCITRIOL [Concomitant]
  16. COLCHICINE [Concomitant]
  17. PRANDIN [Concomitant]

REACTIONS (3)
  - CEREBRAL HAEMORRHAGE [None]
  - CONFUSIONAL STATE [None]
  - FALL [None]
